FAERS Safety Report 9503565 (Version 2)
Quarter: 2013Q4

REPORT INFORMATION
  Report Type: Spontaneous
  Country: AR (occurrence: AR)
  Receive Date: 20130906
  Receipt Date: 20131003
  Transmission Date: 20140711
  Serious: Yes (Other)
  Sender: FDA-Public Use
  Company Number: AR-AMGEN-ARGSP2013062610

PATIENT
  Age: 77 Year
  Sex: Female
  Weight: 44 kg

DRUGS (1)
  1. ENBREL [Suspect]
     Indication: RHEUMATOID ARTHRITIS
     Dosage: 50 MG, WEEKLY
     Route: 058
     Dates: start: 20090101

REACTIONS (12)
  - Osteonecrosis [Recovered/Resolved]
  - Inflammation [Not Recovered/Not Resolved]
  - Decreased immune responsiveness [Recovering/Resolving]
  - Retinal vein thrombosis [Recovered/Resolved]
  - Visual acuity reduced [Recovered/Resolved]
  - Weight decreased [Recovered/Resolved]
  - Arthralgia [Not Recovered/Not Resolved]
  - Local swelling [Not Recovered/Not Resolved]
  - Hand deformity [Not Recovered/Not Resolved]
  - Pain in extremity [Not Recovered/Not Resolved]
  - Cough [Recovering/Resolving]
  - Nasopharyngitis [Recovering/Resolving]
